FAERS Safety Report 20052780 (Version 1)
Quarter: 2021Q4

REPORT INFORMATION
  Report Type: Spontaneous
  Country: PT (occurrence: PT)
  Receive Date: 20211110
  Receipt Date: 20211110
  Transmission Date: 20220303
  Serious: Yes (Other)
  Sender: FDA-Public Use
  Company Number: PT-AMGEN-PRTSP2021150111

PATIENT
  Age: 56 Year
  Sex: Female

DRUGS (3)
  1. CINACALCET [Suspect]
     Active Substance: CINACALCET
     Indication: Hyperparathyroidism tertiary
     Dosage: 60 MILLIGRAM, ONCE A DAY(60 MILLIGRAM, QD)
     Route: 065
  2. CINACALCET [Suspect]
     Active Substance: CINACALCET
     Indication: Off label use
     Dosage: 30 MILLIGRAM, EVERY OTHER DAY (30 MILLIGRAM, ALTERNATE DAY)
     Route: 065
  3. CINACALCET [Suspect]
     Active Substance: CINACALCET
     Dosage: 90 MILLIGRAM, ONCE A DAY (90 MILLIGRAM, QD)
     Route: 065

REACTIONS (4)
  - Osteoporosis [Unknown]
  - Muscle spasms [Unknown]
  - Drug effective for unapproved indication [Unknown]
  - Off label use [Unknown]
